FAERS Safety Report 4832041-4 (Version None)
Quarter: 2005Q4

REPORT INFORMATION
  Report Type: 
  Country: None (occurrence: None)
  Receive Date: 20051116
  Receipt Date: 20051101
  Transmission Date: 20060501
  Serious: Yes (Hospitalization)
  Sender: FDA-Public Use
  Company Number: 02100-JPN-05-0526

PATIENT
  Age: 78 Year
  Sex: Male

DRUGS (3)
  1. CILOSTAZOL [Suspect]
     Indication: ARTERIOSCLEROSIS OBLITERANS
     Dosage: 200 MG, ORAL
     Route: 048
     Dates: start: 20050216, end: 20050420
  2. VALSARTAN [Concomitant]
  3. . [Concomitant]

REACTIONS (2)
  - ARRHYTHMIA [None]
  - HEART RATE INCREASED [None]
